FAERS Safety Report 8997102 (Version 1)
Quarter: 2013Q1

REPORT INFORMATION
  Report Type: Spontaneous
  Country: US (occurrence: US)
  Receive Date: 20130104
  Receipt Date: 20130104
  Transmission Date: 20140127
  Serious: Yes (Other)
  Sender: FDA-Public Use
  Company Number: US-JNJFOC-20121212553

PATIENT
  Age: 21 Year
  Sex: Female

DRUGS (6)
  1. REMICADE [Suspect]
     Indication: PRODUCT USED FOR UNKNOWN INDICATION
     Dosage: 360 (UNITS UNSPECIFIED)
     Route: 042
  2. REMICADE [Suspect]
     Indication: PRODUCT USED FOR UNKNOWN INDICATION
     Dosage: 360 (UNITS UNSPECIFIED)
     Route: 042
     Dates: start: 20121221
  3. TYLENOL [Suspect]
     Route: 065
  4. TYLENOL [Suspect]
     Indication: INFUSION RELATED REACTION
     Route: 065
  5. BENADRYL [Suspect]
     Indication: INFUSION RELATED REACTION
     Route: 065
  6. UNKNOWN MEDICATION [Concomitant]
     Indication: PROPHYLAXIS
     Route: 065

REACTIONS (4)
  - Dyspnoea [Not Recovered/Not Resolved]
  - Chest pain [Not Recovered/Not Resolved]
  - Infusion related reaction [Not Recovered/Not Resolved]
  - Product quality issue [None]
